FAERS Safety Report 24575887 (Version 7)
Quarter: 2024Q4

REPORT INFORMATION
  Report Type: Report from Study
  Country: ES (occurrence: ES)
  Receive Date: 20241104
  Receipt Date: 20241218
  Transmission Date: 20250114
  Serious: Yes (Other)
  Sender: ABBVIE
  Company Number: ES-ABBVIE-5985920

PATIENT
  Age: 75 Year
  Sex: Female

DRUGS (6)
  1. CARBIDOPA\LEVODOPA [Suspect]
     Active Substance: CARBIDOPA\LEVODOPA
     Indication: Parkinson^s disease
     Route: 050
     Dates: start: 20180411, end: 20241028
  2. CARBIDOPA\LEVODOPA [Suspect]
     Active Substance: CARBIDOPA\LEVODOPA
     Dosage: RESTARTED
     Route: 050
     Dates: start: 20241106
  3. CARBIDOPA\LEVODOPA [Suspect]
     Active Substance: CARBIDOPA\LEVODOPA
     Indication: Parkinson^s disease
     Dosage: 240 MG/ML + 12 MG/ML SOLUCION PARA PERFUSION. DRUG LAST ADMIN DATE: OCT 2024
     Route: 058
     Dates: start: 20241028
  4. CARBIDOPA\LEVODOPA [Suspect]
     Active Substance: CARBIDOPA\LEVODOPA
     Dosage: BASAL FLOW OF 0.32 AND A LOW FLOW OF 0.28  240 MG/ML + 12 MG/ML SOLUCION PARA PERFUSION
     Route: 058
     Dates: start: 202410, end: 202410
  5. CARBIDOPA\LEVODOPA [Suspect]
     Active Substance: CARBIDOPA\LEVODOPA
     Dosage: BASAL FLOW OF 0.38 ML/H AND A LOW FLOW OF 0.36 ML/ H 240 MG/ML + 12 MG/ML SOLUCION PARA PERFUSION
     Route: 058
     Dates: start: 202410, end: 202411
  6. NEUPRO [Concomitant]
     Active Substance: ROTIGOTINE
     Indication: Product used for unknown indication
     Dosage: PATCHES
     Dates: start: 2024

REACTIONS (15)
  - Hypertensive crisis [Not Recovered/Not Resolved]
  - Freezing phenomenon [Unknown]
  - Feeding disorder [Unknown]
  - Gait inability [Unknown]
  - Malaise [Unknown]
  - Mobility decreased [Unknown]
  - Dizziness [Not Recovered/Not Resolved]
  - Tachypnoea [Unknown]
  - Nausea [Not Recovered/Not Resolved]
  - General physical health deterioration [Unknown]
  - Therapeutic product effect incomplete [Unknown]
  - Unevaluable event [Unknown]
  - Movement disorder [Not Recovered/Not Resolved]
  - Aphasia [Not Recovered/Not Resolved]
  - Eye movement disorder [Unknown]

NARRATIVE: CASE EVENT DATE: 20240101
